APPROVED DRUG PRODUCT: VONJO
Active Ingredient: PACRITINIB CITRATE
Strength: EQ 100MG BASE
Dosage Form/Route: CAPSULE;ORAL
Application: N208712 | Product #001
Applicant: SOBI INC
Approved: Feb 28, 2022 | RLD: Yes | RS: Yes | Type: RX

PATENTS:
Patent 9573964 | Expires: May 5, 2028
Patent 9573964 | Expires: May 5, 2028
Patent 8153632 | Expires: Jan 17, 2029
Patent 8153632 | Expires: Jan 17, 2029
Patent 8980873 | Expires: Mar 25, 2030
Patent 8980873 | Expires: Mar 25, 2030

EXCLUSIVITY:
Code: NCE | Date: Feb 28, 2027
Code: ODE-397 | Date: Feb 28, 2029